FAERS Safety Report 19973645 (Version 1)
Quarter: 2021Q4

REPORT INFORMATION
  Report Type: Other
  Country: JP (occurrence: JP)
  Receive Date: 20211020
  Receipt Date: 20211020
  Transmission Date: 20220303
  Serious: Yes (Hospitalization, Other)
  Sender: FDA-Public Use
  Company Number: JP-CHUGAI-A2021000932ROCHE

PATIENT
  Age: 40 Year
  Sex: Female
  Weight: 50 kg

DRUGS (16)
  1. ATEZOLIZUMAB [Suspect]
     Active Substance: ATEZOLIZUMAB
     Indication: Lung adenocarcinoma
     Dosage: DOSE INTERVAL UNCERTAINTY
     Route: 041
     Dates: start: 20201022
  2. BEVACIZUMAB [Suspect]
     Active Substance: BEVACIZUMAB
     Indication: Lung adenocarcinoma
     Dosage: DOSE INTERVAL UNCERTAINTY
     Route: 041
     Dates: start: 20201022
  3. CARBOPLATIN [Concomitant]
     Active Substance: CARBOPLATIN
     Indication: Lung adenocarcinoma
     Dosage: DOSE INTERVAL UNCERTAINTY
     Route: 041
     Dates: start: 20201022
  4. PACLITAXEL [Concomitant]
     Active Substance: PACLITAXEL
     Indication: Lung adenocarcinoma
     Dosage: DOSE INTERVAL UNCERTAINTY
     Route: 041
     Dates: start: 20201022
  5. ALFACALCIDOL [Concomitant]
     Active Substance: ALFACALCIDOL
     Indication: Metastases to pelvis
     Route: 048
  6. SYMPROIC [Concomitant]
     Active Substance: NALDEMEDINE
     Indication: Constipation
     Route: 048
  7. TRAVELMIN [DIPHENHYDRAMINE SALICYLATE;DIPROPHYLLINE] [Concomitant]
     Indication: Dizziness
     Route: 048
  8. CALCIUM ASPARTATE [Concomitant]
     Active Substance: CALCIUM ASPARTATE
     Indication: Hypocalcaemia
     Route: 048
  9. LOXOPROFEN SODIUM [Concomitant]
     Active Substance: LOXOPROFEN SODIUM
     Indication: Cancer pain
     Route: 048
  10. ACETAMINOPHEN [Concomitant]
     Active Substance: ACETAMINOPHEN
     Indication: Cancer pain
     Route: 048
  11. LYRICA [Concomitant]
     Active Substance: PREGABALIN
     Indication: Cancer pain
     Route: 048
  12. VONOPRAZAN FUMARATE [Concomitant]
     Active Substance: VONOPRAZAN FUMARATE
     Indication: Gastric ulcer
     Route: 048
  13. EDOXABAN TOSYLATE [Concomitant]
     Active Substance: EDOXABAN TOSYLATE
     Indication: Venous thrombosis limb
     Route: 048
  14. FUROSEMIDE [Concomitant]
     Active Substance: FUROSEMIDE
     Indication: Oedema
     Route: 048
  15. HYDROMORPHONE HYDROCHLORIDE [Concomitant]
     Active Substance: HYDROMORPHONE HYDROCHLORIDE
     Indication: Cancer pain
     Dosage: DOSAGE IS UNCERTAIN.
     Route: 065
  16. GARENOXACIN MESYLATE [Concomitant]
     Active Substance: GARENOXACIN MESYLATE

REACTIONS (6)
  - Gastroenteritis [Recovered/Resolved]
  - Vomiting [Unknown]
  - Decreased appetite [Unknown]
  - Peripheral motor neuropathy [Unknown]
  - Hyponatraemia [Unknown]
  - Haematuria [Unknown]

NARRATIVE: CASE EVENT DATE: 20201028
